FAERS Safety Report 5366125-1 (Version None)
Quarter: 2007Q2

REPORT INFORMATION
  Report Type: 
  Country: None (occurrence: None)
  Receive Date: 20070516
  Receipt Date: 20061130
  Transmission Date: 20071010
  Serious: Yes (Hospitalization)
  Sender: FDA-Public Use
  Company Number: 257482

PATIENT
  Age: 59 Year
  Sex: Male

DRUGS (7)
  1. NOVOSEVEN [Suspect]
     Indication: HAEMOPHILIA A WITH ANTI FACTOR VIII
     Dosage: SEE IMAGE
     Route: 042
     Dates: start: 20060901, end: 20060928
  2. NOVOSEVEN [Suspect]
     Indication: HAEMOPHILIA A WITH ANTI FACTOR VIII
     Dosage: SEE IMAGE
     Route: 042
     Dates: start: 20060929, end: 20060930
  3. NOVOSEVEN [Suspect]
     Indication: HAEMOPHILIA A WITH ANTI FACTOR VIII
     Dosage: SEE IMAGE
     Route: 042
     Dates: start: 20061001, end: 20061002
  4. NOVOSEVEN [Suspect]
     Indication: HAEMOPHILIA A WITH ANTI FACTOR VIII
     Dosage: SEE IMAGE
     Route: 042
     Dates: start: 20061003
  5. MAXZIDE [Concomitant]
  6. TOPROL-XL [Concomitant]
  7. NORVASC [Concomitant]

REACTIONS (1)
  - THERAPEUTIC RESPONSE DECREASED [None]
